FAERS Safety Report 25592254 (Version 1)
Quarter: 2025Q3

REPORT INFORMATION
  Report Type: Spontaneous
  Country: US (occurrence: None)
  Receive Date: 20250722
  Receipt Date: 20250722
  Transmission Date: 20251020
  Serious: Yes (Hospitalization)
  Sender: FDA-CTU
  Company Number: None

PATIENT
  Age: 68 Year
  Sex: Male

DRUGS (20)
  1. TACROLIMUS [Suspect]
     Active Substance: TACROLIMUS
     Indication: Lung transplant
     Dosage: FREQUENCY : DAILY;?
     Route: 048
     Dates: start: 20221205
  2. TACROLIMUS [Suspect]
     Active Substance: TACROLIMUS
     Indication: Lung transplant
     Dosage: FREQUENCY : TWICE A DAY;?
     Route: 048
     Dates: start: 20241008
  3. ALBUTEROL HFA INH (200 PUFFS) [Concomitant]
  4. MYCOPHENOLIC ACID [Concomitant]
     Active Substance: MYCOPHENOLIC ACID
  5. FUROSEMIDE [Concomitant]
     Active Substance: FUROSEMIDE
  6. ITRACONAZOLE [Concomitant]
     Active Substance: ITRACONAZOLE
  7. METOPROLOL SUCCINATE [Concomitant]
     Active Substance: METOPROLOL SUCCINATE
  8. NITROGLYCERIN [Concomitant]
     Active Substance: NITROGLYCERIN
  9. NYSTATIN ORAL SUSP [Concomitant]
  10. ROSUVASTATIN [Concomitant]
     Active Substance: ROSUVASTATIN
  11. ACYCLOVIR [Concomitant]
     Active Substance: ACYCLOVIR
  12. CLOPIDOGREL [Concomitant]
     Active Substance: CLOPIDOGREL BISULFATE
  13. LANTUS SOLOSTAR PEN INJ [Concomitant]
  14. OMEPRAZOLE [Concomitant]
     Active Substance: OMEPRAZOLE
  15. PREDNISONE [Concomitant]
     Active Substance: PREDNISONE
  16. SULFAMETHOXAZOLE\TRIMETHOPRIM [Concomitant]
     Active Substance: SULFAMETHOXAZOLE\TRIMETHOPRIM
  17. CALCIUM [Concomitant]
     Active Substance: CALCIUM
  18. VITAMIN C [Concomitant]
     Active Substance: ASCORBIC ACID
  19. VITAMIN D3 [Concomitant]
     Active Substance: CHOLECALCIFEROL
  20. ACETAMINOPHEN [Concomitant]
     Active Substance: ACETAMINOPHEN

REACTIONS (1)
  - Cerebrovascular accident [None]

NARRATIVE: CASE EVENT DATE: 20250511
